FAERS Safety Report 17652806 (Version 1)
Quarter: 2020Q2

REPORT INFORMATION
  Report Type: Spontaneous
  Country: IT (occurrence: IT)
  Receive Date: 20200409
  Receipt Date: 20200409
  Transmission Date: 20200713
  Serious: Yes (Other)
  Sender: FDA-Public Use
  Company Number: IT-DSJP-DSE-2020-111272

PATIENT

DRUGS (1)
  1. PLAUNAC [Suspect]
     Active Substance: OLMESARTAN MEDOXOMIL
     Indication: HYPERTENSION
     Dosage: 20 MG, QD
     Route: 048
     Dates: start: 20181212, end: 20190301

REACTIONS (4)
  - Cough [Recovering/Resolving]
  - Dysphonia [Not Recovered/Not Resolved]
  - Vocal cord paralysis [Not Recovered/Not Resolved]
  - Laryngeal oedema [Not Recovered/Not Resolved]

NARRATIVE: CASE EVENT DATE: 20181212
